FAERS Safety Report 25316654 (Version 2)
Quarter: 2025Q2

REPORT INFORMATION
  Report Type: Report from Study
  Country: US (occurrence: US)
  Receive Date: 20250515
  Receipt Date: 20250519
  Transmission Date: 20250717
  Serious: Yes (Other)
  Sender: ALEXION PHARMACEUTICALS
  Company Number: US-AstraZeneca-CH-00867808AP

PATIENT

DRUGS (1)
  1. BUDESONIDE\FORMOTEROL [Suspect]
     Active Substance: BUDESONIDE\FORMOTEROL
     Dosage: 160 MICROGRAM, BID
     Route: 065

REACTIONS (6)
  - Product dose omission issue [Unknown]
  - Dyspnoea [Unknown]
  - Dyspnoea [Unknown]
  - Product dose omission in error [Unknown]
  - Device use confusion [Unknown]
  - Cataract [Unknown]
